FAERS Safety Report 19053118 (Version 5)
Quarter: 2023Q2

REPORT INFORMATION
  Report Type: Spontaneous
  Country: US (occurrence: US)
  Receive Date: 20210324
  Receipt Date: 20230628
  Transmission Date: 20230722
  Serious: No
  Sender: FDA-Public Use
  Company Number: US-PFIZER INC-2021234006

PATIENT
  Age: 81 Year
  Sex: Female

DRUGS (2)
  1. IBRANCE [Suspect]
     Active Substance: PALBOCICLIB
     Indication: Breast cancer female
     Dosage: 125 MG, CYCLIC, 28-DAY SUPPLY,  TAKE 1 PO DAILY FOR 21 DAYS EVERY 28 DAYS
     Route: 048
  2. NITROSTAT [Concomitant]
     Active Substance: NITROGLYCERIN
     Indication: Chest pain
     Dosage: 0.4 MG, SUBLINGUAL, TAB, Q5MIN, PRN CHEST PAIN,

REACTIONS (1)
  - Blood pressure increased [Unknown]
